FAERS Safety Report 6237919-5 (Version None)
Quarter: 2009Q2

REPORT INFORMATION
  Report Type: 
  Country: None (occurrence: None)
  Receive Date: 20090621
  Receipt Date: 20090612
  Transmission Date: 20091009
  Serious: Yes (Hospitalization, Other)
  Sender: FDA-Public Use
  Company Number: PHHY2009FR23674

PATIENT

DRUGS (2)
  1. NEORAL [Suspect]
     Indication: LUNG TRANSPLANT
     Dosage: UNK
  2. PROGRAF [Concomitant]

REACTIONS (3)
  - ANXIETY [None]
  - HALLUCINATION [None]
  - IMMUNOSUPPRESSANT DRUG LEVEL INCREASED [None]
